FAERS Safety Report 8219907-2 (Version None)
Quarter: 2012Q1

REPORT INFORMATION
  Report Type: 
  Country: None (occurrence: None)
  Receive Date: 20120319
  Receipt Date: 20120312
  Transmission Date: 20120608
  Serious: Yes (Hospitalization)
  Sender: FDA-Public Use
  Company Number: FR-PFIZER INC-2012064082

PATIENT
  Age: 26 Year
  Sex: Male

DRUGS (11)
  1. TROPICAMIDE [Concomitant]
  2. PENICILLIN G [Suspect]
     Indication: EYE INFECTION SYPHILITIC
     Dosage: 3 MILLION IU 3X/DAY, UNK
     Route: 042
     Dates: start: 20111022, end: 20111111
  3. CHIBRO-CADRON [Concomitant]
  4. SULFADIAZINE [Suspect]
     Indication: EYE INFECTION TOXOPLASMAL
     Dosage: UNK
     Route: 048
     Dates: start: 20111026, end: 20111104
  5. CLINDAMYCIN HCL [Suspect]
     Indication: EYE INFECTION TOXOPLASMAL
     Dosage: 600 MG, 4X/DAY
     Route: 048
     Dates: start: 20111104, end: 20111106
  6. PYRIMETHAMINE TAB [Suspect]
     Indication: EYE INFECTION TOXOPLASMAL
     Dosage: UNK
     Route: 048
     Dates: start: 20111026, end: 20111104
  7. CLINDAMYCIN HCL [Suspect]
     Dosage: UNK
     Dates: start: 20111108, end: 20111119
  8. PYRIMETHAMINE TAB [Suspect]
     Dosage: UNK
     Dates: end: 20111119
  9. INDOMETHACIN [Concomitant]
  10. ATROPINE [Concomitant]
  11. PHENYLEPHRINE HCL [Concomitant]

REACTIONS (3)
  - LEUKOPENIA [None]
  - TOXIC SKIN ERUPTION [None]
  - NEUTROPENIA [None]
